FAERS Safety Report 8363690-7 (Version None)
Quarter: 2012Q2

REPORT INFORMATION
  Report Type: 
  Country: None (occurrence: None)
  Receive Date: 20120516
  Receipt Date: 20120419
  Transmission Date: 20120825
  Serious: Yes (Death, Other)
  Sender: FDA-Public Use
  Company Number: GB-CELGENEUS-167-21880-12051131

PATIENT

DRUGS (2)
  1. REVLIMID [Suspect]
     Indication: MULTIPLE MYELOMA
     Route: 048
  2. DEXAMETHASONE [Concomitant]
     Indication: MULTIPLE MYELOMA
     Route: 048

REACTIONS (12)
  - PLATELET COUNT DECREASED [None]
  - MYELOMA RECURRENCE [None]
  - BREAST CANCER [None]
  - DERMATITIS ALLERGIC [None]
  - CEREBROVASCULAR DISORDER [None]
  - EMBOLISM VENOUS [None]
  - GASTROINTESTINAL DISORDER [None]
  - NEUTROPHIL COUNT DECREASED [None]
  - LETHARGY [None]
  - INFECTION [None]
  - PANCYTOPENIA [None]
  - MULTIPLE MYELOMA [None]
